FAERS Safety Report 9170289 (Version 1)
Quarter: 2013Q1

REPORT INFORMATION
  Report Type: Spontaneous
  Country: FR (occurrence: None)
  Receive Date: 20130308
  Receipt Date: 20130308
  Transmission Date: 20140127
  Serious: Yes (Hospitalization)
  Sender: FDA-Public Use
  Company Number: SYM-2013-01430

PATIENT
  Age: 29 Year
  Sex: Male

DRUGS (4)
  1. FLAGYL [Suspect]
     Indication: GINGIVAL OEDEMA
     Route: 048
     Dates: start: 20121010, end: 20121016
  2. SOLUPRED (PREDNISONE) [Suspect]
     Indication: GINGIVAL OEDEMA
  3. AUGMENTIN [Suspect]
     Indication: GINGIVAL OEDEMA
     Route: 048
     Dates: start: 20121010, end: 20121016
  4. TRIFLUCAN (FLUCONAZOLE) (UNKNOWN) (FLUCONAZOLE) [Concomitant]

REACTIONS (3)
  - Neutropenia [None]
  - Lymphopenia [None]
  - Anaemia [None]
